FAERS Safety Report 14869240 (Version 1)
Quarter: 2018Q2

REPORT INFORMATION
  Report Type: Other
  Country: FR (occurrence: FR)
  Receive Date: 20180509
  Receipt Date: 20180509
  Transmission Date: 20180711
  Serious: Yes (Hospitalization, Other)
  Sender: FDA-Public Use
  Company Number: FR-MACLEODS PHARMACEUTICALS US LTD-MAC2018013000

PATIENT

DRUGS (5)
  1. PREVISCAN (FLUINDIONE) [Suspect]
     Active Substance: FLUINDIONE
     Indication: POISONING DELIBERATE
     Dosage: UNK, (UNSPECIFIED), (TABLET BREACKABLE)
     Route: 048
     Dates: start: 20180402, end: 20180403
  2. VENLAFAXINE [Suspect]
     Active Substance: VENLAFAXINE HYDROCHLORIDE
     Indication: POISONING DELIBERATE
     Dosage: UNK, (UNSPECIFIED)
     Route: 048
     Dates: start: 20180402, end: 20180403
  3. ZOPICLONE [Suspect]
     Active Substance: ZOPICLONE
     Indication: POISONING DELIBERATE
     Dosage: UNK (UNSPECIFIED)
     Route: 048
     Dates: start: 20180402, end: 20180403
  4. SEROPLEX [Suspect]
     Active Substance: ESCITALOPRAM OXALATE
     Indication: POISONING DELIBERATE
     Dosage: UNK, (UNSPECIFIED)
     Route: 048
     Dates: start: 20180402, end: 20180403
  5. ATARAX [Suspect]
     Active Substance: HYDROXYZINE HYDROCHLORIDE
     Indication: POISONING DELIBERATE
     Dosage: UNK, (UNSPECIFIED)
     Route: 048
     Dates: start: 20180402, end: 20180403

REACTIONS (1)
  - Altered state of consciousness [Recovered/Resolved]

NARRATIVE: CASE EVENT DATE: 20180403
